FAERS Safety Report 10014412 (Version 1)
Quarter: 2014Q1

REPORT INFORMATION
  Report Type: Report from Study
  Country: DE (occurrence: DE)
  Receive Date: 20140317
  Receipt Date: 20140317
  Transmission Date: 20141002
  Serious: Yes (Other)
  Sender: FDA-Public Use
  Company Number: DE-ROCHE-1360813

PATIENT
  Sex: 0

DRUGS (6)
  1. BEVACIZUMAB [Suspect]
     Indication: METASTATIC RENAL CELL CARCINOMA
     Route: 042
  2. INTERFERON ALFA-2A [Suspect]
     Indication: METASTATIC RENAL CELL CARCINOMA
     Dosage: 3 MIO UNITS
     Route: 058
  3. SORAFENIB [Suspect]
     Indication: METASTATIC RENAL CELL CARCINOMA
     Route: 065
  4. AXITINIB [Suspect]
     Indication: METASTATIC RENAL CELL CARCINOMA
     Dosage: 5-10 MG
     Route: 065
  5. PAZOPANIB [Suspect]
     Indication: METASTATIC RENAL CELL CARCINOMA
     Route: 065
  6. SUNITINIB [Suspect]
     Indication: METASTATIC RENAL CELL CARCINOMA
     Dosage: 28 CONSECUTIVE DAYS OF A GIVEN 6 WEEKD CYCLE
     Route: 065

REACTIONS (9)
  - Renal failure acute [Unknown]
  - Mucosal inflammation [Unknown]
  - Proteinuria [Unknown]
  - Cardiac failure [Unknown]
  - Thrombocytopenia [Unknown]
  - Alveolitis [Unknown]
  - Angina pectoris [Unknown]
  - Diarrhoea [Unknown]
  - Palmar-plantar erythrodysaesthesia syndrome [Unknown]
